FAERS Safety Report 16411177 (Version 1)
Quarter: 2019Q2

REPORT INFORMATION
  Report Type: Spontaneous
  Country: US (occurrence: US)
  Receive Date: 20190610
  Receipt Date: 20190610
  Transmission Date: 20190711
  Serious: Yes (Death, Other)
  Sender: FDA-Public Use
  Company Number: US-BEXIMCO-2019BEX00025

PATIENT
  Age: 78 Year
  Sex: Male

DRUGS (1)
  1. METFORMIN HYDROCHLORIDE. [Suspect]
     Active Substance: METFORMIN HYDROCHLORIDE
     Dosage: 500 MG, 2X/DAY, HELD THE DAY OF SURGERY
     Route: 065

REACTIONS (5)
  - Multiple organ dysfunction syndrome [Fatal]
  - Acute kidney injury [Not Recovered/Not Resolved]
  - Sepsis [Fatal]
  - Lactic acidosis [Not Recovered/Not Resolved]
  - Urinary tract obstruction [Not Recovered/Not Resolved]
